FAERS Safety Report 5397394-X (Version None)
Quarter: 2007Q3

REPORT INFORMATION
  Report Type: 
  Country: None (occurrence: None)
  Receive Date: 20070726
  Receipt Date: 20070717
  Transmission Date: 20080115
  Serious: Yes (Other)
  Sender: FDA-Public Use
  Company Number: PHEH2007US10073

PATIENT
  Age: 53 Year
  Sex: Female

DRUGS (6)
  1. ZELNORM [Suspect]
  2. XELODA [Suspect]
     Indication: ANAL CANCER
     Dosage: 1500 MG, 2 PER DAY
     Dates: start: 20070615
  3. FOLIC ACID [Concomitant]
     Dates: end: 20070619
  4. MITOMYCIN [Concomitant]
  5. CHEMOTHERAPEUTICS NOS [Suspect]
  6. RADIATION THERAPY [Suspect]

REACTIONS (11)
  - ANAL CANCER [None]
  - COLITIS ULCERATIVE [None]
  - CYST [None]
  - DIARRHOEA [None]
  - DRY MOUTH [None]
  - ERYTHEMA [None]
  - FEELING HOT [None]
  - PAIN [None]
  - RECTAL HAEMORRHAGE [None]
  - RED BLOOD CELL COUNT DECREASED [None]
  - VAGINAL MUCOSAL BLISTERING [None]
